FAERS Safety Report 9557395 (Version 1)
Quarter: 2013Q3

REPORT INFORMATION
  Report Type: Spontaneous
  Country: US (occurrence: None)
  Receive Date: 20130726
  Receipt Date: 20130726
  Transmission Date: 20140515
  Serious: Yes (Hospitalization)
  Sender: FDA-Public Use
  Company Number: UTC-020449

PATIENT
  Age: 75 Year
  Sex: Female
  Weight: 69 kg

DRUGS (4)
  1. REMODULIN [Suspect]
     Indication: PULMONARY HYPERTENSION
     Dosage: 1 IN 1 MIN.
     Route: 042
     Dates: start: 20070424
  2. TRACLEER (BOSENTAN) [Concomitant]
  3. DIGOXIN [Concomitant]
  4. OXYGEN [Concomitant]

REACTIONS (1)
  - Device related infection [None]
